FAERS Safety Report 16013699 (Version 4)
Quarter: 2020Q4

REPORT INFORMATION
  Report Type: Spontaneous
  Country: US (occurrence: US)
  Receive Date: 20190227
  Receipt Date: 20201102
  Transmission Date: 20210113
  Serious: Yes (Hospitalization, Disabling, Other)
  Sender: FDA-Public Use
  Company Number: US-SA-2019SA052714

PATIENT

DRUGS (3)
  1. KEVZARA [Suspect]
     Active Substance: SARILUMAB
     Indication: RHEUMATOID ARTHRITIS
     Dosage: 200 MG; OTHER
     Route: 058
     Dates: start: 201806
  2. PREDNISONE. [Concomitant]
     Active Substance: PREDNISONE
  3. KEVZARA [Suspect]
     Active Substance: SARILUMAB
     Dosage: 200 MG; OTHER
     Route: 058
     Dates: start: 201910

REACTIONS (9)
  - Arthralgia [Unknown]
  - Rheumatoid arthritis [Unknown]
  - Oropharyngeal pain [Unknown]
  - Tooth infection [Unknown]
  - Rash [Unknown]
  - Loss of personal independence in daily activities [Unknown]
  - Anxiety [Unknown]
  - Joint range of motion decreased [Unknown]
  - Tonsillar hypertrophy [Unknown]
